FAERS Safety Report 9514965 (Version 9)
Quarter: 2015Q2

REPORT INFORMATION
  Report Type: Spontaneous
  Country: US (occurrence: US)
  Receive Date: 20130911
  Receipt Date: 20150424
  Transmission Date: 20150821
  Serious: Yes (Hospitalization, Disabling, Other)
  Sender: FDA-Public Use
  Company Number: US-009507513-1309USA003676

PATIENT
  Sex: Female

DRUGS (2)
  1. ALENDRONATE SODIUM. [Suspect]
     Active Substance: ALENDRONATE SODIUM
     Indication: OSTEOPOROSIS
     Dosage: 70 MG, QW
     Route: 048
     Dates: start: 20080126, end: 20140805
  2. FOSAMAX [Suspect]
     Active Substance: ALENDRONATE SODIUM
     Indication: OSTEOPOROSIS
     Dosage: 70 MG, QW
     Route: 048
     Dates: start: 20011003

REACTIONS (16)
  - Hysterectomy [Unknown]
  - Hyperglycaemia [Unknown]
  - Urinary tract infection [Unknown]
  - Cerebrovascular accident [Recovered/Resolved]
  - Thrombosis [Unknown]
  - Intramedullary rod insertion [Unknown]
  - Bone density decreased [Not Recovered/Not Resolved]
  - Fall [Unknown]
  - Pallor [Unknown]
  - Supraventricular extrasystoles [Unknown]
  - Femur fracture [Recovering/Resolving]
  - Pulmonary embolism [Unknown]
  - Dyspnoea [Unknown]
  - Wrist fracture [Not Recovered/Not Resolved]
  - Chronic obstructive pulmonary disease [Not Recovered/Not Resolved]
  - Chest pain [Recovered/Resolved]

NARRATIVE: CASE EVENT DATE: 2008
